FAERS Safety Report 23952230 (Version 1)
Quarter: 2024Q2

REPORT INFORMATION
  Report Type: Report from Study
  Country: US (occurrence: None)
  Receive Date: 20240607
  Receipt Date: 20240607
  Transmission Date: 20240716
  Serious: Yes (Hospitalization, Other)
  Sender: FDA-Public Use
  Company Number: 2024A128153

PATIENT
  Sex: Female

DRUGS (1)
  1. CALQUENCE [Suspect]
     Active Substance: ACALABRUTINIB
     Indication: Chronic lymphocytic leukaemia
     Route: 048
     Dates: start: 202308

REACTIONS (15)
  - Myalgia [Unknown]
  - Arthralgia [Unknown]
  - Malaise [Unknown]
  - Pneumonia [Unknown]
  - Hepatic pain [Unknown]
  - Blood urine present [Unknown]
  - Haematochezia [Unknown]
  - Productive cough [Unknown]
  - Cough [Unknown]
  - Nasal congestion [Unknown]
  - Dysphonia [Unknown]
  - Abdominal pain [Unknown]
  - Abdominal pain upper [Unknown]
  - Chest pain [Unknown]
  - Dizziness [Unknown]
